FAERS Safety Report 5032458-1 (Version None)
Quarter: 2006Q2

REPORT INFORMATION
  Report Type: 
  Country: None (occurrence: None)
  Receive Date: 20060622
  Receipt Date: 20060614
  Transmission Date: 20061013
  Serious: Yes (Other)
  Sender: FDA-Public Use
  Company Number: PHNR2006AU00819

PATIENT
  Age: 68 Year
  Sex: Male

DRUGS (6)
  1. EXELON [Suspect]
     Indication: PRESENILE DEMENTIA
     Dosage: 3.0 MG PER DAY
  2. EXELON [Suspect]
     Dosage: 1.5 MG PER DAY
     Dates: end: 20050218
  3. RENITEC [Concomitant]
     Dosage: 20 MG, UNK
     Route: 048
  4. VENTOLIN [Concomitant]
  5. LIPITOR [Concomitant]
     Dosage: 10 MG, UNK
     Route: 048
  6. REMINYL [Concomitant]
     Dosage: 8 MG DAILY

REACTIONS (4)
  - ASTHMA [None]
  - COUGH [None]
  - LACRIMATION INCREASED [None]
  - WHEEZING [None]
